FAERS Safety Report 7189667-5 (Version None)
Quarter: 2010Q4

REPORT INFORMATION
  Report Type: 
  Country: None (occurrence: None)
  Receive Date: 20101223
  Receipt Date: 20101214
  Transmission Date: 20110411
  Serious: No
  Sender: FDA-Public Use
  Company Number: US-BIOGENIDEC-2010BI043966

PATIENT
  Sex: Female

DRUGS (3)
  1. TYSABRI [Suspect]
     Indication: MULTIPLE SCLEROSIS
     Route: 042
     Dates: start: 20090918
  2. AMPYRA [Concomitant]
     Dates: start: 20100401
  3. AMPYRA [Concomitant]
     Dates: start: 20100501

REACTIONS (8)
  - DEVICE ISSUE [None]
  - DRY EYE [None]
  - EYE PAIN [None]
  - EYE PRURITUS [None]
  - EYE SWELLING [None]
  - FATIGUE [None]
  - FOREIGN BODY SENSATION IN EYES [None]
  - VISION BLURRED [None]
